FAERS Safety Report 15177283 (Version 2)
Quarter: 2018Q4

REPORT INFORMATION
  Report Type: Report from Study
  Country: US (occurrence: US)
  Receive Date: 20180720
  Receipt Date: 20181017
  Transmission Date: 20190204
  Serious: No
  Sender: FDA-Public Use
  Company Number: US-AMGEN-USASL2018083450

PATIENT
  Age: 65 Year
  Sex: Female

DRUGS (2)
  1. REPATHA [Suspect]
     Active Substance: EVOLOCUMAB
     Indication: HYPERCHOLESTEROLAEMIA
     Dosage: 420 MG, QMO
     Route: 065
  2. REPATHA [Suspect]
     Active Substance: EVOLOCUMAB
     Dosage: 140 MG, Q2WK
     Route: 065

REACTIONS (11)
  - Influenza like illness [Recovering/Resolving]
  - Injection site swelling [Unknown]
  - Vomiting [Unknown]
  - Vertigo [Unknown]
  - Bedridden [Unknown]
  - Dizziness [Unknown]
  - Sinus headache [Unknown]
  - Sinusitis [Unknown]
  - Injection site mass [Unknown]
  - Injection site erythema [Unknown]
  - Nausea [Unknown]
